FAERS Safety Report 7170333-7 (Version None)
Quarter: 2010Q4

REPORT INFORMATION
  Report Type: 
  Country: None (occurrence: None)
  Receive Date: 20101217
  Receipt Date: 20101215
  Transmission Date: 20110411
  Serious: Yes (Death, Hospitalization)
  Sender: FDA-Public Use
  Company Number: BR-ROCHE-734870

PATIENT
  Sex: Female
  Weight: 56 kg

DRUGS (6)
  1. TRASTUZUMAB [Suspect]
     Dosage: FREQUENCY: 21/21, DATE OF LAST DOSE PRIOR TO SAE: 05 OCT 2010.
     Route: 058
     Dates: start: 20100621
  2. FLUOROURACIL [Suspect]
     Dosage: DATE OF LAST DOSE PRIOR TO SAE: 05 OCT 2010, FREQUENCY: 21/21, DOSE FORM: INFUSION
     Route: 042
     Dates: start: 20100913
  3. EPIRUBICIN [Suspect]
     Dosage: DOSE FORM:INFUSION, DATE OF LAST DOSE: 05 OCT 2010, FREQUENCY: 21/21
     Route: 042
     Dates: start: 20100913
  4. CYCLOPHOSPHAMIDE [Suspect]
     Dosage: DOSE FORM: INFUSION, FREQUENCY: 21/21, DATE OF LAST DOSE: 05 OCT 2010
     Route: 042
     Dates: start: 20100913
  5. FENOBARBITAL [Concomitant]
     Dates: start: 19600101, end: 20101016
  6. OMEPRAZOLE [Concomitant]
     Dates: start: 20100621, end: 20101016

REACTIONS (3)
  - FEBRILE NEUTROPENIA [None]
  - SEPTIC SHOCK [None]
  - THROMBOCYTOPENIA [None]
